FAERS Safety Report 20369320 (Version 1)
Quarter: 2022Q1

REPORT INFORMATION
  Report Type: Spontaneous
  Country: US (occurrence: US)
  Receive Date: 20220124
  Receipt Date: 20220124
  Transmission Date: 20220423
  Serious: Yes (Other)
  Sender: FDA-Public Use
  Company Number: US-AMGEN-USASP2022006247

PATIENT
  Age: 81 Year
  Sex: Female

DRUGS (4)
  1. PROLIA [Suspect]
     Active Substance: DENOSUMAB
     Indication: Osteoporosis
     Dosage: UNK UNK, Q6MO
     Route: 065
  2. RITUXIMAB [Suspect]
     Active Substance: RITUXIMAB
     Indication: Waldenstrom^s macroglobulinaemia
     Dosage: 375 MILLIGRAM/ METER SQAURE
     Route: 042
  3. CYCLOPHOSPHAMIDE [Concomitant]
     Active Substance: CYCLOPHOSPHAMIDE
     Dosage: 300 MILLIGRAM/ METER SQAURE
  4. DEXAMETHASONE [Concomitant]
     Active Substance: DEXAMETHASONE
     Dosage: 20 MILLIGRAM, EVERY 21 DAYS
     Route: 042

REACTIONS (10)
  - Parkinson^s disease [Unknown]
  - Intervertebral disc degeneration [Not Recovered/Not Resolved]
  - Facet joint syndrome [Not Recovered/Not Resolved]
  - Waldenstrom^s macroglobulinaemia [Recovered/Resolved]
  - Neutropenia [Unknown]
  - Hypercalcaemia [Unknown]
  - Oral herpes [Unknown]
  - Anaemia [Unknown]
  - Fall [Unknown]
  - Urinary tract infection [Unknown]
